FAERS Safety Report 9507838 (Version 3)
Quarter: 2013Q3

REPORT INFORMATION
  Report Type: Spontaneous
  Country: CZ (occurrence: CZ)
  Receive Date: 20130909
  Receipt Date: 20130923
  Transmission Date: 20140515
  Serious: Yes (Life-Threatening, Hospitalization, Other)
  Sender: FDA-Public Use
  Company Number: CZ-PFIZER INC-2013254152

PATIENT
  Age: 30 Year
  Sex: Male
  Weight: 76 kg

DRUGS (6)
  1. SALAZOPYRIN EN-TABS [Suspect]
     Indication: REITER^S SYNDROME
     Dosage: 500 MG, 4X/DAY (TWO TABLETS IN THE MORNING AND TWO IN THE EVENING)
     Route: 048
     Dates: start: 20130702, end: 20130809
  2. IBUPROFEN [Concomitant]
     Indication: REITER^S SYNDROME
     Dosage: 400-600MG A DAY
     Route: 048
     Dates: start: 20130702
  3. PREDNISONE [Concomitant]
     Indication: REITER^S SYNDROME
     Dosage: 30 MG, 1X/DAY (1-0-0)
     Route: 048
     Dates: start: 20130702
  4. PREDNISONE [Concomitant]
     Dosage: 40 MG, 1X/DAY
  5. HELICID [Concomitant]
     Dosage: 10 MG, 1X/DAY
     Route: 048
  6. DETRALEX [Concomitant]
     Indication: HAEMORRHOIDS
     Dosage: 1 DF, 1X/DAY
     Route: 048
     Dates: start: 20130801, end: 20130808

REACTIONS (7)
  - Neutropenia [Recovered/Resolved]
  - Agranulocytosis [Unknown]
  - Acute tonsillitis [Unknown]
  - Pyrexia [Recovering/Resolving]
  - Rash generalised [Recovered/Resolved]
  - Leukocytosis [Unknown]
  - Off label use [Unknown]
